FAERS Safety Report 9991546 (Version 1)
Quarter: 2014Q1

REPORT INFORMATION
  Report Type: Spontaneous
  Country: US (occurrence: None)
  Receive Date: 20140123
  Receipt Date: 20140123
  Transmission Date: 20141002
  Serious: Yes (Hospitalization)
  Sender: FDA-Public Use
  Company Number: UTC-036605

PATIENT
  Age: 61 Year
  Sex: Female

DRUGS (1)
  1. REMODULIN (5 MILLIGRAM/MILLILITERS, INJECTION FOR INFUSION) (TREPROSTINIL SODIUM) [Suspect]
     Indication: PULMONARY ARTERIAL HYPERTENSION
     Dosage: 100.8 UG/KG (0.07 UG/KG, 1 IN 1 MIN), INTRAVENOUS DRIP
     Dates: start: 20091218

REACTIONS (1)
  - Device breakage [None]
